FAERS Safety Report 5953715-8 (Version None)
Quarter: 2008Q4

REPORT INFORMATION
  Report Type: 
  Country: None (occurrence: None)
  Receive Date: 20081114
  Receipt Date: 20081107
  Transmission Date: 20090506
  Serious: Yes (Life-Threatening, Hospitalization, Other)
  Sender: FDA-Public Use
  Company Number: US-ELI_LILLY_AND_COMPANY-US200811002617

PATIENT
  Sex: Female

DRUGS (5)
  1. PROZAC [Suspect]
     Indication: DEPRESSION
     Dosage: UNK, UNKNOWN
     Route: 065
     Dates: start: 20080901
  2. PROZAC [Suspect]
     Dosage: UNK, UNKNOWN
     Route: 065
     Dates: start: 20080101
  3. TOPAMAX [Concomitant]
     Indication: DIZZINESS
     Dosage: UNK, UNKNOWN
     Route: 065
     Dates: start: 20060101
  4. REBIF [Concomitant]
     Indication: MULTIPLE SCLEROSIS
     Dosage: 44 UG, 3/W
     Route: 058
     Dates: start: 20050505, end: 20081007
  5. DIAZEPAM [Concomitant]
     Indication: DIZZINESS
     Dosage: UNK, UNKNOWN
     Route: 065

REACTIONS (3)
  - INTENTIONAL OVERDOSE [None]
  - LOSS OF CONSCIOUSNESS [None]
  - SUICIDE ATTEMPT [None]
